FAERS Safety Report 17408781 (Version 1)
Quarter: 2020Q1

REPORT INFORMATION
  Report Type: Spontaneous
  Country: FR (occurrence: FR)
  Receive Date: 20200212
  Receipt Date: 20200212
  Transmission Date: 20200409
  Serious: Yes (Hospitalization)
  Sender: FDA-Public Use
  Company Number: FR-MYLANLABS-2020M1015236

PATIENT
  Age: 61 Year
  Sex: Female
  Weight: 51 kg

DRUGS (1)
  1. BUPIVACAINE MYLAN [Suspect]
     Active Substance: BUPIVACAINE
     Indication: INDUCTION OF ANAESTHESIA
     Dosage: UNK
     Route: 024
     Dates: start: 20191105, end: 20191105

REACTIONS (4)
  - Hypovolaemia [Recovered/Resolved]
  - Nausea [Recovered/Resolved]
  - Headache [Recovered/Resolved]
  - Neck pain [Recovered/Resolved]

NARRATIVE: CASE EVENT DATE: 20191106
